FAERS Safety Report 8283134-3 (Version None)
Quarter: 2012Q2

REPORT INFORMATION
  Report Type: 
  Country: None (occurrence: None)
  Receive Date: 20120413
  Receipt Date: 20120412
  Transmission Date: 20120825
  Serious: Yes (Other)
  Sender: FDA-Public Use
  Company Number: US-GLAXOSMITHKLINE-A0973405A

PATIENT
  Sex: Male

DRUGS (5)
  1. ZONEGRAN [Concomitant]
  2. CARNITOR [Concomitant]
  3. PROBIOTICS [Concomitant]
  4. LOVAZA [Suspect]
     Indication: BLOOD TRIGLYCERIDES INCREASED
     Dosage: 1000MG TWICE PER DAY
     Route: 048
     Dates: start: 20120323
  5. PANCREATIC ENZYME [Concomitant]

REACTIONS (1)
  - CONVULSION [None]
